FAERS Safety Report 10795791 (Version 2)
Quarter: 2015Q2

REPORT INFORMATION
  Report Type: Report from Study
  Country: BR (occurrence: BR)
  Receive Date: 20150215
  Receipt Date: 20150407
  Transmission Date: 20150821
  Serious: No
  Sender: FDA-Public Use
  Company Number: BR-BRISTOL-MYERS SQUIBB COMPANY-BMS-2015-000195

PATIENT

DRUGS (1)
  1. ABATACEPT [Suspect]
     Active Substance: ABATACEPT
     Indication: RHEUMATOID ARTHRITIS
     Dosage: 500 MG, Q4WK
     Route: 042

REACTIONS (5)
  - Osteoporosis [Recovering/Resolving]
  - Swelling [Recovered/Resolved]
  - Osteoarthritis [Recovering/Resolving]
  - Fibromyalgia [Recovering/Resolving]
  - Pain [Recovered/Resolved]
